FAERS Safety Report 25712007 (Version 3)
Quarter: 2025Q4

REPORT INFORMATION
  Report Type: Spontaneous
  Country: CA (occurrence: CA)
  Receive Date: 20250821
  Receipt Date: 20251016
  Transmission Date: 20260117
  Serious: Yes (Other)
  Sender: PFIZER
  Company Number: CA-PFIZER INC-202400064789

PATIENT
  Age: 18 Year
  Sex: Female

DRUGS (1)
  1. RUXIENCE [Suspect]
     Active Substance: RITUXIMAB-PVVR
     Indication: Granulomatosis with polyangiitis
     Dosage: 1000 MG X 1 DOSE NEEDS ONE ADDITIONAL DOSE OF 1000 MG 13AUG2025.
     Route: 042
     Dates: start: 20250730

REACTIONS (3)
  - Seizure [Unknown]
  - Vomiting [Unknown]
  - Off label use [Unknown]

NARRATIVE: CASE EVENT DATE: 20250730
